FAERS Safety Report 6732297-7 (Version None)
Quarter: 2010Q2

REPORT INFORMATION
  Report Type: 
  Country: None (occurrence: None)
  Receive Date: 20100519
  Receipt Date: 20100517
  Transmission Date: 20101027
  Serious: Yes (Death, Hospitalization)
  Sender: FDA-Public Use
  Company Number: FR-SANOFI-AVENTIS-2010SA027954

PATIENT
  Age: 47 Year
  Sex: Male

DRUGS (6)
  1. FLUOROURACILE WINTHROP [Suspect]
     Dosage: DOSE:1500 MILLIGRAM(S)/MILLILITRE
     Route: 042
     Dates: start: 20100407, end: 20100407
  2. TAXOTERE [Suspect]
     Route: 042
     Dates: start: 20100407, end: 20100407
  3. CISPLATIN [Suspect]
     Route: 042
     Dates: start: 20100407, end: 20100407
  4. SOLU-MEDROL [Suspect]
     Indication: PREMEDICATION
     Route: 042
     Dates: start: 20100407, end: 20100407
  5. ZOPHREN [Suspect]
     Indication: PREMEDICATION
     Route: 042
     Dates: start: 20100407, end: 20100407
  6. NEUPOGEN [Suspect]
     Indication: PREMEDICATION
     Dates: start: 20100407, end: 20100407

REACTIONS (4)
  - BACTERIAL SEPSIS [None]
  - INTESTINAL INFARCTION [None]
  - LEUKOPENIA [None]
  - SEPTIC SHOCK [None]
